FAERS Safety Report 8789634 (Version 1)
Quarter: 2012Q4

REPORT INFORMATION
  Report Type: Spontaneous
  Country: US (occurrence: None)
  Receive Date: 20120911
  Receipt Date: 20120911
  Transmission Date: 20130627
  Serious: No
  Sender: FDA-Public Use
  Company Number: None

PATIENT
  Age: 29 Year
  Sex: Female
  Weight: 97.07 kg

DRUGS (3)
  1. LAMOTRIGINE [Suspect]
     Indication: BIPOLAR DEPRESSION
     Route: 048
     Dates: start: 20120826
  2. LAMOTRIGINE [Suspect]
     Indication: BIPOLAR DEPRESSION
     Route: 048
     Dates: start: 20120105, end: 20120112
  3. LAMOTRIGINE [Suspect]
     Indication: BIPOLAR DEPRESSION

REACTIONS (1)
  - Product substitution issue [None]
